FAERS Safety Report 15088608 (Version 6)
Quarter: 2018Q3

REPORT INFORMATION
  Report Type: Report from Study
  Country: US (occurrence: US)
  Receive Date: 20180629
  Receipt Date: 20180823
  Transmission Date: 20181010
  Serious: Yes (Hospitalization, Other)
  Sender: FDA-Public Use
  Company Number: US-IPSEN BIOPHARMACEUTICALS, INC.-2018-09515

PATIENT
  Age: 69 Year
  Sex: Female
  Weight: 65.3 kg

DRUGS (16)
  1. ZOLOFT [Concomitant]
     Active Substance: SERTRALINE HYDROCHLORIDE
     Route: 048
  2. GLUCOPHAGE [Concomitant]
     Active Substance: METFORMIN HYDROCHLORIDE
     Dates: end: 2018
  3. LEVOXYL [Concomitant]
     Active Substance: LEVOTHYROXINE SODIUM
     Route: 048
  4. CATAPRES [Concomitant]
     Active Substance: CLONIDINE HYDROCHLORIDE
     Dates: end: 2018
  5. ASPIRIN. [Concomitant]
     Active Substance: ASPIRIN
     Route: 048
  6. ROXICODONE [Concomitant]
     Active Substance: OXYCODONE HYDROCHLORIDE
     Indication: PAIN
  7. K?TAB [Concomitant]
     Active Substance: POTASSIUM CHLORIDE
  8. ZYPREXA [Concomitant]
     Active Substance: OLANZAPINE
     Dates: end: 2018
  9. NORVASC [Concomitant]
     Active Substance: AMLODIPINE BESYLATE
     Route: 048
  10. MARINOL [Concomitant]
     Active Substance: DRONABINOL
  11. SOMATULINE DEPOT [Suspect]
     Active Substance: LANREOTIDE ACETATE
     Indication: NEUROENDOCRINE TUMOUR
     Dosage: 90 MG
     Route: 058
     Dates: start: 20180212
  12. PEMBROLIZUMAB. [Suspect]
     Active Substance: PEMBROLIZUMAB
     Indication: NEUROENDOCRINE TUMOUR
     Dosage: 200 MG
     Route: 042
     Dates: start: 20180212
  13. LIPITOR [Concomitant]
     Active Substance: ATORVASTATIN CALCIUM
     Dates: end: 2018
  14. BENICAR HCT [Concomitant]
     Active Substance: HYDROCHLOROTHIAZIDE\OLMESARTAN MEDOXOMIL
     Dosage: 40?12.5 MG
     Dates: end: 2018
  15. ZYPREXA [Concomitant]
     Active Substance: OLANZAPINE
     Dates: start: 201807
  16. VITAMIN D3 [Concomitant]
     Active Substance: CHOLECALCIFEROL
     Dates: end: 2018

REACTIONS (28)
  - Pleural effusion [Unknown]
  - Decreased appetite [Unknown]
  - Nausea [Recovered/Resolved]
  - Gastritis [Not Recovered/Not Resolved]
  - Lymphatic obstruction [Unknown]
  - Vomiting [Not Recovered/Not Resolved]
  - Hypokalaemia [Unknown]
  - Acute kidney injury [Recovering/Resolving]
  - Gastric ulcer [Unknown]
  - Dehydration [Unknown]
  - Essential hypertension [Unknown]
  - Blood alkaline phosphatase increased [Not Recovered/Not Resolved]
  - Colitis [Not Recovered/Not Resolved]
  - Atelectasis [Unknown]
  - Cytomegalovirus test positive [Unknown]
  - Malignant ascites [Unknown]
  - Gastrointestinal wall thickening [Unknown]
  - Inappropriate schedule of drug administration [Unknown]
  - Abdominal pain [Not Recovered/Not Resolved]
  - Rectal haemorrhage [Not Recovered/Not Resolved]
  - Hepatic cirrhosis [Unknown]
  - Lung infection [Unknown]
  - Diarrhoea [Recovered/Resolved]
  - Ill-defined disorder [Unknown]
  - Malnutrition [Unknown]
  - Cardiac failure [Unknown]
  - Abdominal wall mass [Unknown]
  - Renal mass [Unknown]

NARRATIVE: CASE EVENT DATE: 2018
